FAERS Safety Report 16729408 (Version 2)
Quarter: 2019Q3

REPORT INFORMATION
  Report Type: Spontaneous
  Country: US (occurrence: US)
  Receive Date: 20190822
  Receipt Date: 20190904
  Transmission Date: 20191005
  Serious: No
  Sender: FDA-Public Use
  Company Number: US-PFIZER INC-2019341748

PATIENT
  Age: 6 Year
  Sex: Female
  Weight: 13.61 kg

DRUGS (3)
  1. GENOTROPIN [Suspect]
     Active Substance: SOMATROPIN
     Dosage: 0.2 MG, UNK
  2. GENOTROPIN [Suspect]
     Active Substance: SOMATROPIN
     Dosage: 0.4 MG, 1X/DAY(ONCE A DAY BEFORE BED)
     Dates: start: 201906
  3. GENOTROPIN [Suspect]
     Active Substance: SOMATROPIN
     Indication: GROWTH DISORDER
     Dosage: 0.4 MG, DAILY
     Dates: start: 201906

REACTIONS (5)
  - Accidental exposure to product [Unknown]
  - Wrong technique in device usage process [Unknown]
  - Incorrect dose administered by device [Unknown]
  - Oropharyngeal pain [Recovered/Resolved]
  - Exposure via skin contact [Unknown]

NARRATIVE: CASE EVENT DATE: 201906
